FAERS Safety Report 6860314-2 (Version None)
Quarter: 2010Q3

REPORT INFORMATION
  Report Type: 
  Country: None (occurrence: None)
  Receive Date: 20100720
  Receipt Date: 20100623
  Transmission Date: 20110219
  Serious: Yes (Hospitalization, Other)
  Sender: FDA-Public Use
  Company Number: PHHY2010US40865

PATIENT
  Sex: Female

DRUGS (2)
  1. EXJADE [Suspect]
     Indication: SICKLE CELL ANAEMIA
     Dosage: 1500 MG, DAILY
     Route: 048
     Dates: start: 20100407
  2. GABAPENTIN [Concomitant]
     Dosage: 900 MG, TID
     Route: 048

REACTIONS (5)
  - CHEST PAIN [None]
  - DEPRESSION [None]
  - PAIN [None]
  - PAIN IN EXTREMITY [None]
  - SICKLE CELL ANAEMIA WITH CRISIS [None]
